FAERS Safety Report 15590557 (Version 1)
Quarter: 2018Q4

REPORT INFORMATION
  Report Type: Spontaneous
  Country: US (occurrence: US)
  Receive Date: 20181106
  Receipt Date: 20181106
  Transmission Date: 20190205
  Serious: Yes (Hospitalization, Other)
  Sender: FDA-Public Use
  Company Number: US-PFIZER INC-2018454412

PATIENT
  Age: 42 Year
  Sex: Male

DRUGS (3)
  1. CARBOPLATIN. [Suspect]
     Active Substance: CARBOPLATIN
     Indication: NON-SMALL CELL LUNG CANCER
     Dosage: 579 MG, UNK (5 AUC)
     Route: 042
     Dates: start: 20140826, end: 20141028
  2. PEMETREXED. [Suspect]
     Active Substance: PEMETREXED
     Indication: NON-SMALL CELL LUNG CANCER
     Dosage: 790 MG, UNK
     Route: 042
     Dates: start: 20140826, end: 20141028
  3. BEVACIZUMAB. [Suspect]
     Active Substance: BEVACIZUMAB
     Dosage: 820 MG, UNK
     Route: 042
     Dates: start: 20140826, end: 20141028

REACTIONS (2)
  - Respiratory disorder [Recovering/Resolving]
  - Cough [Recovering/Resolving]
